FAERS Safety Report 14599136 (Version 1)
Quarter: 2018Q1

REPORT INFORMATION
  Report Type: Spontaneous
  Country: US (occurrence: US)
  Receive Date: 20180305
  Receipt Date: 20180305
  Transmission Date: 20180509
  Serious: Yes (Hospitalization)
  Sender: FDA-Public Use
  Company Number: US-PFIZER INC-2017116392

PATIENT
  Age: 73 Year
  Sex: Male
  Weight: 77.98 kg

DRUGS (15)
  1. LOSARTAN. [Concomitant]
     Active Substance: LOSARTAN
  2. MONTELUKAST [Concomitant]
     Active Substance: MONTELUKAST SODIUM
  3. FORMOTEROL W/MOMETASONE [Concomitant]
     Active Substance: FORMOTEROL\MOMETASONE
     Route: 055
  4. NITROSTAT [Concomitant]
     Active Substance: NITROGLYCERIN
  5. OXYGEN. [Concomitant]
     Active Substance: OXYGEN
  6. FLOMAX [Concomitant]
     Active Substance: TAMSULOSIN HYDROCHLORIDE
     Route: 055
  7. XELJANZ [Suspect]
     Active Substance: TOFACITINIB CITRATE
     Indication: RHEUMATOID ARTHRITIS
     Dosage: 5 MG, 2X/DAY
     Dates: start: 2015
  8. SPIRIVA [Concomitant]
     Active Substance: TIOTROPIUM BROMIDE MONOHYDRATE
     Route: 055
  9. ULTRAM [Concomitant]
     Active Substance: TRAMADOL HYDROCHLORIDE
  10. METFORMIN [Concomitant]
     Active Substance: METFORMIN HYDROCHLORIDE
  11. PREDNISONE. [Concomitant]
     Active Substance: PREDNISONE
  12. ASPIRIN. [Concomitant]
     Active Substance: ASPIRIN
  13. METOPROLOL. [Concomitant]
     Active Substance: METOPROLOL
  14. PRAVASTATIN. [Concomitant]
     Active Substance: PRAVASTATIN
  15. VESICARE [Concomitant]
     Active Substance: SOLIFENACIN SUCCINATE

REACTIONS (1)
  - Cerebrovascular accident [Unknown]

NARRATIVE: CASE EVENT DATE: 201709
